FAERS Safety Report 9155865 (Version 2)
Quarter: 2013Q1

REPORT INFORMATION
  Report Type: Spontaneous
  Country: GB (occurrence: GB)
  Receive Date: 20130311
  Receipt Date: 20130315
  Transmission Date: 20140127
  Serious: Yes (Other)
  Sender: FDA-Public Use
  Company Number: PHHY2013GB021553

PATIENT
  Sex: Female

DRUGS (4)
  1. TRAMADOL [Suspect]
     Indication: NEURALGIA
     Dosage: 200 MG, DAILY
  2. TRAMADOL [Suspect]
     Dosage: 100 MG, DAILY
  3. CITALOPRAM [Concomitant]
     Indication: DEPRESSION
     Dosage: 10 MG, SINCE 8 YEARS
  4. CITALOPRAM [Concomitant]
     Dosage: SINCE 8 YEARS

REACTIONS (6)
  - Injury [Unknown]
  - Chest discomfort [Unknown]
  - Hallucination [Unknown]
  - Agitation [Unknown]
  - Drug dependence [Unknown]
  - Withdrawal syndrome [Unknown]
